FAERS Safety Report 24167784 (Version 3)
Quarter: 2024Q3

REPORT INFORMATION
  Report Type: Spontaneous
  Country: SK (occurrence: SK)
  Receive Date: 20240802
  Receipt Date: 20240826
  Transmission Date: 20241016
  Serious: Yes (Hospitalization, Other)
  Sender: PFIZER
  Company Number: SK-PFIZER INC-PV202400099725

PATIENT
  Age: 66 Year
  Sex: Male

DRUGS (3)
  1. XELJANZ [Suspect]
     Active Substance: TOFACITINIB CITRATE
     Indication: Colitis ulcerative
     Dosage: 5 MG 2X/DAY, 1-0-1
     Route: 048
     Dates: start: 2014, end: 20240718
  2. PENTASA [Concomitant]
     Active Substance: MESALAMINE
     Dosage: 500 MG, 2X/DAY
  3. MEBEVERINE HYDROCHLORIDE [Concomitant]
     Active Substance: MEBEVERINE HYDROCHLORIDE
     Dosage: AS NEEDED

REACTIONS (1)
  - Acute myocardial infarction [Recovered/Resolved with Sequelae]

NARRATIVE: CASE EVENT DATE: 20240712
